FAERS Safety Report 9051322 (Version 1)
Quarter: 2013Q1

REPORT INFORMATION
  Report Type: Spontaneous
  Country: US (occurrence: US)
  Receive Date: 20130206
  Receipt Date: 20130206
  Transmission Date: 20140127
  Serious: No
  Sender: FDA-Public Use
  Company Number: US-009507513-1302USA001466

PATIENT
  Sex: Female

DRUGS (1)
  1. BCG LIVE [Suspect]
     Indication: BLADDER CANCER

REACTIONS (1)
  - Arthritis [Recovering/Resolving]
